FAERS Safety Report 4876906-6 (Version None)
Quarter: 2006Q1

REPORT INFORMATION
  Report Type: 
  Country: None (occurrence: None)
  Receive Date: 20060110
  Receipt Date: 20060105
  Transmission Date: 20060701
  Serious: Yes (Death)
  Sender: FDA-Public Use
  Company Number: GB-SANOFI-SYNTHELABO-A01200600072

PATIENT
  Age: 54 Year
  Sex: Male
  Weight: 69 kg

DRUGS (2)
  1. OXALIPLATIN [Suspect]
     Indication: METASTATIC NEOPLASM
     Route: 042
     Dates: start: 20051118, end: 20051118
  2. XELODA [Suspect]
     Route: 048
     Dates: start: 20051118, end: 20051204

REACTIONS (4)
  - CARDIAC DISORDER [None]
  - CHEST PAIN [None]
  - MYOCARDIAL INFARCTION [None]
  - SUDDEN DEATH [None]
